FAERS Safety Report 9304370 (Version 1)
Quarter: 2013Q2

REPORT INFORMATION
  Report Type: Spontaneous
  Country: US (occurrence: US)
  Receive Date: 20130522
  Receipt Date: 20130522
  Transmission Date: 20140414
  Serious: Yes (Death)
  Sender: FDA-Public Use
  Company Number: US-B.I. PHARMACEUTICALS,INC./RIDGEFIELD-2013-BI-13510BP

PATIENT
  Age: 49 Year
  Sex: Female

DRUGS (1)
  1. COMBIVENT [Suspect]

REACTIONS (1)
  - Death [Fatal]
